FAERS Safety Report 4326485-7 (Version None)
Quarter: 2004Q1

REPORT INFORMATION
  Report Type: 
  Country: None (occurrence: None)
  Receive Date: 20040329
  Receipt Date: 20040329
  Transmission Date: 20041129
  Serious: Yes (Other)
  Sender: FDA-Public Use
  Company Number: None

PATIENT
  Age: 63 Year
  Sex: Female
  Weight: 65.7716 kg

DRUGS (2)
  1. PAXIL [Suspect]
     Dosage: ONCE A DAY
     Dates: start: 20011101, end: 20021001
  2. PAXIL CR [Suspect]
     Dosage: ONCE A DAY
     Dates: start: 20021001, end: 20031201

REACTIONS (5)
  - ABNORMAL DREAMS [None]
  - DISTURBANCE IN ATTENTION [None]
  - DIZZINESS [None]
  - MOOD SWINGS [None]
  - NAUSEA [None]
